FAERS Safety Report 24797110 (Version 4)
Quarter: 2025Q2

REPORT INFORMATION
  Report Type: Report from Study
  Country: US (occurrence: US)
  Receive Date: 20250101
  Receipt Date: 20250414
  Transmission Date: 20250717
  Serious: Yes (Death, Hospitalization, Other)
  Sender: SYNDAX
  Company Number: US-SYNDAX PHARMACEUTICALS, INC.-2024US000626

PATIENT
  Sex: Male
  Weight: 97.959 kg

DRUGS (3)
  1. REVUFORJ [Suspect]
     Active Substance: REVUMENIB CITRATE
     Indication: Acute myeloid leukaemia
     Dosage: 160 MILLIGRAM, BID
     Route: 048
     Dates: start: 20241218
  2. REVUFORJ [Suspect]
     Active Substance: REVUMENIB CITRATE
     Dosage: 110 MILLIGRAM, BID
     Route: 048
     Dates: start: 20241218
  3. GILTERITINIB [Concomitant]
     Active Substance: GILTERITINIB
     Indication: Acute myeloid leukaemia
     Dosage: 120 MILLIGRAM, DAIL, ONCE A DAY
     Route: 048

REACTIONS (7)
  - Death [Fatal]
  - Pyrexia [Unknown]
  - Differentiation syndrome [Unknown]
  - Blast cell count decreased [Unknown]
  - Fluid retention [Unknown]
  - Inflammation [Unknown]
  - Product dose omission issue [Unknown]
